FAERS Safety Report 7233678-8 (Version None)
Quarter: 2011Q1

REPORT INFORMATION
  Report Type: 
  Country: None (occurrence: None)
  Receive Date: 20110107
  Receipt Date: 20101227
  Transmission Date: 20110831
  Serious: Yes (Death)
  Sender: FDA-Public Use
  Company Number: UTC-003696

PATIENT
  Age: 63 Year
  Sex: Female
  Weight: 99.5 kg

DRUGS (5)
  1. LETAIRIS (AMBRISENTAN) [Concomitant]
  2. TYVASO [Suspect]
     Indication: PULMONARY ARTERIAL HYPERTENSION
     Dosage: 288 MCG (72 MCG, 4 IN 1 D), INHALATION
     Route: 055
     Dates: start: 20101019
  3. COUMADIN [Concomitant]
  4. VERAPAMIL [Concomitant]
  5. DIURETICS (DIURETICS) [Concomitant]

REACTIONS (1)
  - PULMONARY ARTERIAL HYPERTENSION [None]
